FAERS Safety Report 15061477 (Version 1)
Quarter: 2018Q2

REPORT INFORMATION
  Report Type: Spontaneous
  Country: US (occurrence: US)
  Receive Date: 20180625
  Receipt Date: 20180625
  Transmission Date: 20180711
  Serious: No
  Sender: FDA-Public Use
  Company Number: US-BAYER-2018-117768

PATIENT
  Age: 80 Year
  Sex: Female
  Weight: 78.96 kg

DRUGS (2)
  1. ASPIRINE [Concomitant]
     Active Substance: ASPIRIN
  2. ALEVE PM [Suspect]
     Active Substance: DIPHENHYDRAMINE HYDROCHLORIDE\NAPROXEN SODIUM
     Indication: PAIN
     Dosage: 2 DF, ONCE
     Route: 048

REACTIONS (1)
  - Drug ineffective [Unknown]
